FAERS Safety Report 21332944 (Version 1)
Quarter: 2022Q3

REPORT INFORMATION
  Report Type: Spontaneous
  Country: CA (occurrence: CA)
  Receive Date: 20220914
  Receipt Date: 20220914
  Transmission Date: 20221027
  Serious: Yes (Other)
  Sender: FDA-Public Use
  Company Number: CA-SAMSUNG BIOEPIS-SB-2022-22637

PATIENT
  Age: 59 Year
  Sex: Male
  Weight: 57 kg

DRUGS (1)
  1. INFLIXIMAB [Suspect]
     Active Substance: INFLIXIMAB
     Indication: Crohn^s disease
     Route: 042

REACTIONS (5)
  - Urticaria [Not Recovered/Not Resolved]
  - Neutrophilic dermatosis [Not Recovered/Not Resolved]
  - Colectomy total [Not Recovered/Not Resolved]
  - Ileostomy [Not Recovered/Not Resolved]
  - Off label use [Not Recovered/Not Resolved]
